FAERS Safety Report 6565354-9 (Version None)
Quarter: 2010Q1

REPORT INFORMATION
  Report Type: 
  Country: None (occurrence: None)
  Receive Date: 20100201
  Receipt Date: 20100126
  Transmission Date: 20100710
  Serious: Yes (Life-Threatening, Hospitalization)
  Sender: FDA-Public Use
  Company Number: DE-TEVA-202664ISR

PATIENT
  Age: 69 Year
  Sex: Male
  Weight: 111 kg

DRUGS (4)
  1. TORASEMIDE [Interacting]
     Indication: HYPERTENSION
     Route: 048
     Dates: start: 20000101
  2. CIPROFLOXACIN HYDROCHLORIDE [Suspect]
     Indication: PYELONEPHRITIS
     Route: 048
     Dates: start: 20081028, end: 20081030
  3. DIGITOXIN INJ [Interacting]
     Indication: ATRIAL FIBRILLATION
     Route: 048
     Dates: start: 19950101, end: 20081030
  4. LISINOPRIL AND HYDROCHLOROTHIAZIDE [Interacting]
     Indication: HYPERTENSION
     Dosage: 40MG LISINOPRIL, 25MG HCT
     Route: 048
     Dates: start: 20000101, end: 20081030

REACTIONS (3)
  - DIARRHOEA [None]
  - RENAL FAILURE [None]
  - VOMITING [None]
